FAERS Safety Report 15740782 (Version 1)
Quarter: 2018Q4

REPORT INFORMATION
  Report Type: Spontaneous
  Country: GB (occurrence: GB)
  Receive Date: 20181219
  Receipt Date: 20181219
  Transmission Date: 20190205
  Serious: Yes (Other)
  Sender: FDA-Public Use
  Company Number: GB-PERRIGO-18GB014581

PATIENT
  Age: 59 Year
  Sex: Male
  Weight: 70 kg

DRUGS (2)
  1. TEA TREE OIL. [Suspect]
     Active Substance: TEA TREE OIL
     Indication: FUNGAL INFECTION
     Dosage: 1 DF, BID TO TOENAIL
     Route: 061
     Dates: start: 20180915, end: 20181017
  2. IBUPROFEN. [Suspect]
     Active Substance: IBUPROFEN
     Indication: TENDONITIS
     Dosage: 1200 MG, QD
     Route: 048
     Dates: start: 20171004, end: 20171031

REACTIONS (3)
  - Vision blurred [Recovered/Resolved with Sequelae]
  - Visual field defect [Recovered/Resolved with Sequelae]
  - Visual acuity reduced [Recovered/Resolved with Sequelae]

NARRATIVE: CASE EVENT DATE: 20171029
